FAERS Safety Report 9670835 (Version 4)
Quarter: 2014Q1

REPORT INFORMATION
  Report Type: Spontaneous
  Country: US (occurrence: US)
  Receive Date: 20131106
  Receipt Date: 20140131
  Transmission Date: 20141002
  Serious: No
  Sender: FDA-Public Use
  Company Number: US-009507513-1311USA001740

PATIENT
  Age: 15 Year
  Sex: Female
  Weight: 67.12 kg

DRUGS (1)
  1. NEXPLANON [Suspect]
     Indication: CONTRACEPTION
     Dosage: UNKNOWN
     Route: 059
     Dates: end: 20131029

REACTIONS (5)
  - Implant site pain [Not Recovered/Not Resolved]
  - Discomfort [Recovered/Resolved]
  - Adverse event [Recovered/Resolved]
  - Device kink [Recovered/Resolved]
  - Fall [Unknown]
